FAERS Safety Report 5510204-2 (Version None)
Quarter: 2007Q4

REPORT INFORMATION
  Report Type: 
  Country: None (occurrence: None)
  Receive Date: 20071108
  Receipt Date: 20071025
  Transmission Date: 20080405
  Serious: Yes (Hospitalization)
  Sender: FDA-Public Use
  Company Number: AU-ELI_LILLY_AND_COMPANY-AU200611001243

PATIENT
  Sex: Male

DRUGS (8)
  1. GEMCITABINE HCL [Suspect]
     Indication: NON-HODGKIN'S LYMPHOMA
     Dosage: 1760 MG, UNK
     Route: 042
     Dates: start: 20061026, end: 20061121
  2. VINORELBINE [Suspect]
     Indication: NON-HODGKIN'S LYMPHOMA RECURRENT
     Dosage: 44 MG, UNK
     Route: 042
     Dates: start: 20061026, end: 20061121
  3. *RITUXIMAB [Suspect]
     Indication: NON-HODGKIN'S LYMPHOMA RECURRENT
     Dosage: 660 MG, UNK
     Route: 042
     Dates: start: 20061026, end: 20061121
  4. NEUPOGEN [Suspect]
     Indication: NON-HODGKIN'S LYMPHOMA RECURRENT
     Dosage: 6 MG, OTHER
     Route: 058
     Dates: start: 20061103, end: 20061121
  5. AVAPRO [Concomitant]
     Indication: HYPERTENSION
     Dosage: 100 MG, DAILY (1/D)
  6. EFFEXOR [Concomitant]
     Indication: ANTIDEPRESSANT THERAPY
     Dosage: 75 MG, OTHER
  7. STILNOX [Concomitant]
     Indication: SEDATIVE THERAPY
     Dosage: 10 MG AT NIGHT
  8. KAPANOL [Concomitant]
     Indication: ANALGESIC THERAPY
     Dosage: 20 MG, UNK

REACTIONS (4)
  - ABDOMINAL PAIN [None]
  - COLITIS [None]
  - DIARRHOEA [None]
  - FEBRILE NEUTROPENIA [None]
